FAERS Safety Report 20680043 (Version 2)
Quarter: 2022Q2

REPORT INFORMATION
  Report Type: Spontaneous
  Country: FR (occurrence: FR)
  Receive Date: 20220406
  Receipt Date: 20220502
  Transmission Date: 20220721
  Serious: Yes (Other)
  Sender: FDA-Public Use
  Company Number: FR-PFIZER INC-202200478976

PATIENT
  Age: 78 Year
  Sex: Female

DRUGS (1)
  1. CLINDAMYCIN [Suspect]
     Active Substance: CLINDAMYCIN
     Indication: Tooth abscess
     Dosage: 4 CAPSULES DAILY

REACTIONS (15)
  - Vaginal abscess [Not Recovered/Not Resolved]
  - Glaucoma [Unknown]
  - Erythema [Not Recovered/Not Resolved]
  - Epistaxis [Not Recovered/Not Resolved]
  - Paraesthesia [Not Recovered/Not Resolved]
  - Eye pruritus [Unknown]
  - Feeling abnormal [Unknown]
  - Eating disorder [Unknown]
  - Pain [Not Recovered/Not Resolved]
  - Depression [Not Recovered/Not Resolved]
  - Herpes zoster [Not Recovered/Not Resolved]
  - Skin plaque [Unknown]
  - Hypersensitivity [Unknown]
  - Rash pruritic [Not Recovered/Not Resolved]
  - Ocular hyperaemia [Unknown]
